FAERS Safety Report 9328060 (Version 1)
Quarter: 2013Q2

REPORT INFORMATION
  Report Type: Spontaneous
  Country: US (occurrence: US)
  Receive Date: 20130604
  Receipt Date: 20130604
  Transmission Date: 20140414
  Serious: No
  Sender: FDA-Public Use
  Company Number: US-SANOFI-AVENTIS-2012SA045520

PATIENT
  Age: 63 Year
  Sex: Male

DRUGS (3)
  1. LANTUS [Suspect]
     Indication: TYPE 2 DIABETES MELLITUS
     Route: 058
     Dates: start: 20120619
  2. SOLOSTAR [Suspect]
     Dates: start: 20120619
  3. JANUMET [Concomitant]

REACTIONS (4)
  - Visual impairment [Not Recovered/Not Resolved]
  - Asthenia [Unknown]
  - Nervousness [Unknown]
  - Blood glucose increased [Unknown]
